FAERS Safety Report 9703566 (Version 2)
Quarter: 2013Q4

REPORT INFORMATION
  Report Type: Spontaneous
  Country: US (occurrence: US)
  Receive Date: 20131122
  Receipt Date: 20131122
  Transmission Date: 20140711
  Serious: No
  Sender: FDA-Public Use
  Company Number: US-PFIZER INC-2013076042

PATIENT
  Age: 68 Year
  Sex: Female

DRUGS (2)
  1. PROTONIX [Suspect]
     Indication: GASTROOESOPHAGEAL REFLUX DISEASE
     Dosage: 40 MG, 2X/DAY
  2. PROTONIX [Suspect]
     Dosage: 40 MG, 1X/DAY

REACTIONS (1)
  - Gastric disorder [Unknown]
